FAERS Safety Report 9394751 (Version 8)
Quarter: 2014Q1

REPORT INFORMATION
  Report Type: Report from Study
  Country: DE (occurrence: DE)
  Receive Date: 20130711
  Receipt Date: 20140225
  Transmission Date: 20141002
  Serious: Yes (Hospitalization)
  Sender: FDA-Public Use
  Company Number: DE-ROCHE-1242753

PATIENT
  Age: 42 Year
  Sex: Male
  Weight: 115.8 kg

DRUGS (7)
  1. VISMODEGIB [Suspect]
     Indication: BASAL CELL CARCINOMA
     Dosage: INTERRUPTED ON 22/APR/2013.?DATE OF LAST DOSE PRIOR TO SAE 9/JUN/2013
     Route: 048
     Dates: start: 20130320, end: 20130422
  2. VISMODEGIB [Suspect]
     Dosage: DATE OF LAST DOSE PRIOR TO SAE: 09/JUN/2013. DISCONTINUED ON AN UNREPORTED DATE.
     Route: 048
     Dates: start: 20130429
  3. SERTRALINE [Concomitant]
     Indication: DEPRESSION
     Route: 065
     Dates: start: 201101
  4. CEFUROXIM [Concomitant]
     Indication: ABSCESS
     Route: 065
     Dates: start: 20130429, end: 20130503
  5. TERZOLIN [Concomitant]
     Indication: TINEA VERSICOLOUR
     Dosage: 2 APPS/WEEK
     Route: 065
     Dates: start: 20130909
  6. NIZORAL [Concomitant]
     Indication: TINEA VERSICOLOUR
     Dosage: 2 APPS/DAY
     Route: 065
     Dates: start: 20130806
  7. BASOCEF [Concomitant]
     Indication: ABSCESS
     Dosage: INDICATION:ABCESS RIGHT?SCAPULA
     Route: 065
     Dates: start: 20130422, end: 20130428

REACTIONS (1)
  - Somatisation disorder [Recovered/Resolved]
